FAERS Safety Report 5191458-1 (Version None)
Quarter: 2006Q4

REPORT INFORMATION
  Report Type: 
  Country: None (occurrence: None)
  Receive Date: 20061226
  Receipt Date: 20061117
  Transmission Date: 20070319
  Serious: Yes (Hospitalization)
  Sender: FDA-Public Use
  Company Number: DE-ABBOTT-06P-062-0350791-00

PATIENT
  Sex: Female
  Weight: 96 kg

DRUGS (8)
  1. HUMIRA [Suspect]
     Indication: PSORIATIC ARTHROPATHY
     Route: 058
     Dates: start: 20060512, end: 20060512
  2. HUMIRA [Suspect]
     Route: 058
     Dates: start: 20060627
  3. ACEMETACIN [Concomitant]
     Indication: PSORIATIC ARTHROPATHY
     Route: 048
     Dates: start: 20060404
  4. NIFEDIPINE [Concomitant]
     Indication: HYPERTENSION
     Route: 048
     Dates: start: 20040101
  5. BUDESONIDE [Concomitant]
     Indication: ASTHMA
     Route: 055
     Dates: start: 20040101
  6. BUDESONIDE [Concomitant]
     Indication: SEASONAL ALLERGY
  7. VENTOLIN [Concomitant]
     Indication: ASTHMA
     Route: 055
     Dates: start: 20040101
  8. VENTOLIN [Concomitant]
     Indication: SEASONAL ALLERGY

REACTIONS (4)
  - ACCIDENT [None]
  - FALL [None]
  - HAEMATOMA [None]
  - JOINT EFFUSION [None]
